FAERS Safety Report 9617901 (Version 3)
Quarter: 2014Q1

REPORT INFORMATION
  Report Type: Report from Study
  Country: US (occurrence: US)
  Receive Date: 20131011
  Receipt Date: 20140220
  Transmission Date: 20141002
  Serious: Yes (Hospitalization)
  Sender: FDA-Public Use
  Company Number: US-ABBVIE-13P-163-1154485-00

PATIENT
  Age: 64 Year
  Sex: Female
  Weight: 103.51 kg

DRUGS (35)
  1. HUMIRA [Suspect]
     Indication: RHEUMATOID ARTHRITIS
     Dosage: INTERMITTENTLY WHEN PEN WAS AVAILABLE
     Dates: start: 20120713
  2. HUMIRA [Suspect]
     Indication: CROHN^S DISEASE
     Route: 058
     Dates: start: 201304
  3. HUMIRA [Suspect]
     Indication: UNDIFFERENTIATED CONNECTIVE TISSUE DISEASE
  4. PREDNISONE [Concomitant]
     Indication: RHEUMATOID ARTHRITIS
  5. PREDNISONE [Concomitant]
     Dates: start: 20130131
  6. PREDNISONE [Concomitant]
     Dates: start: 20130326
  7. PREDNISONE [Concomitant]
     Dates: start: 20130711
  8. PREDNISONE [Concomitant]
     Dates: start: 20131021
  9. PREDNISONE [Concomitant]
  10. ZOLOFT [Concomitant]
     Indication: DEPRESSION
     Dates: end: 20130131
  11. ZOLOFT [Concomitant]
     Dates: start: 20130131, end: 20130326
  12. ZOLOFT [Concomitant]
     Dates: start: 20130326
  13. SPIRONOLACTONE [Concomitant]
     Indication: OEDEMA PERIPHERAL
  14. FUROSEMIDE [Concomitant]
     Indication: OEDEMA PERIPHERAL
  15. LEVOTHYROXINE [Concomitant]
     Indication: HYPOTHYROIDISM
     Dates: end: 20131021
  16. LEVOTHYROXINE [Concomitant]
     Dates: start: 20131021
  17. PRAVASTATIN [Concomitant]
     Indication: BLOOD CHOLESTEROL INCREASED
     Dates: start: 20131021
  18. PANTOPRAZOLE [Concomitant]
     Indication: GASTROOESOPHAGEAL REFLUX DISEASE
  19. DOXYCYCLINE [Concomitant]
     Indication: ROSACEA
  20. PRESERVISION LUTEIN [Concomitant]
     Indication: MACULAR DEGENERATION
  21. COQ10 [Concomitant]
     Indication: PRODUCT USED FOR UNKNOWN INDICATION
  22. VITAMIN D3 [Concomitant]
     Indication: PRODUCT USED FOR UNKNOWN INDICATION
  23. MULTIVITAMIN [Concomitant]
     Indication: PRODUCT USED FOR UNKNOWN INDICATION
  24. SONATA [Concomitant]
     Indication: PRODUCT USED FOR UNKNOWN INDICATION
     Dosage: AT BEDTIME PRN
  25. AMBIEN [Concomitant]
     Indication: PRODUCT USED FOR UNKNOWN INDICATION
     Dosage: AT BEDTIME PRN
  26. CALCIUM [Concomitant]
     Indication: PRODUCT USED FOR UNKNOWN INDICATION
  27. ALBUTEROL [Concomitant]
     Indication: PRODUCT USED FOR UNKNOWN INDICATION
     Route: 055
  28. REMICADE [Concomitant]
     Indication: PRODUCT USED FOR UNKNOWN INDICATION
  29. FOLIC ACID [Concomitant]
     Indication: PRODUCT USED FOR UNKNOWN INDICATION
  30. ALPRAZOLAM [Concomitant]
     Indication: PRODUCT USED FOR UNKNOWN INDICATION
  31. ALPRAZOLAM [Concomitant]
     Dates: start: 20130131
  32. ALPRAZOLAM [Concomitant]
     Dates: start: 20130326
  33. VICODIN [Concomitant]
     Indication: PRODUCT USED FOR UNKNOWN INDICATION
     Dosage: 1-2 PRN
     Dates: start: 20130326
  34. IBUPROFEN [Concomitant]
     Indication: PRODUCT USED FOR UNKNOWN INDICATION
     Dates: start: 20130326
  35. PRED FORTE [Concomitant]
     Indication: PRODUCT USED FOR UNKNOWN INDICATION
     Dosage: GTT 4X R EYE,  2 X L EYE
     Route: 047
     Dates: start: 20130711

REACTIONS (15)
  - Pneumoperitoneum [Recovered/Resolved]
  - Endometrial cancer [Recovered/Resolved]
  - Abdominal pain [Recovered/Resolved]
  - Abdominal pain [Not Recovered/Not Resolved]
  - Inappropriate schedule of drug administration [Unknown]
  - Vaginal haemorrhage [Not Recovered/Not Resolved]
  - Incisional hernia [Not Recovered/Not Resolved]
  - Wrong technique in drug usage process [Unknown]
  - Incorrect dose administered [Unknown]
  - Injection site pain [Unknown]
  - Injection site swelling [Not Recovered/Not Resolved]
  - Injection site haemorrhage [Unknown]
  - Bronchospasm [Unknown]
  - Lung disorder [Unknown]
  - Incision site erythema [Not Recovered/Not Resolved]
